FAERS Safety Report 10952785 (Version 1)
Quarter: 2015Q1

REPORT INFORMATION
  Report Type: Spontaneous
  Country: US (occurrence: None)
  Receive Date: 20150324
  Receipt Date: 20150324
  Transmission Date: 20150721
  Serious: Yes (Life-Threatening, Hospitalization, Disabling, Congenital Anomaly)
  Sender: FDA-Public Use
  Company Number: None

PATIENT
  Age: 30 Year
  Sex: Female

DRUGS (3)
  1. PHENERGAN [Suspect]
     Active Substance: PROMETHAZINE HYDROCHLORIDE
     Indication: VOMITING IN PREGNANCY
     Dosage: 1
     Route: 048
     Dates: start: 20071224, end: 20080813
  2. PHENERGAN [Suspect]
     Active Substance: PROMETHAZINE HYDROCHLORIDE
     Dosage: 1
     Route: 048
     Dates: start: 20071224, end: 20080813
  3. PRENATAL VITAMIN [Concomitant]
     Active Substance: VITAMINS

REACTIONS (4)
  - Ventricular septal defect [None]
  - Atrial septal defect [None]
  - Cleft palate [None]
  - Maternal drugs affecting foetus [None]

NARRATIVE: CASE EVENT DATE: 20080814
